FAERS Safety Report 8246396-4 (Version None)
Quarter: 2012Q1

REPORT INFORMATION
  Report Type: 
  Country: None (occurrence: None)
  Receive Date: 20120330
  Receipt Date: 20120328
  Transmission Date: 20120608
  Serious: No
  Sender: FDA-Public Use
  Company Number: US-B.I. PHARMACEUTICALS,INC./RIDGEFIELD-2012-BP-05913BP

PATIENT
  Sex: Female

DRUGS (3)
  1. TRADJENTA [Suspect]
  2. SULFONYLUREA [Concomitant]
  3. BLOOD PRESSURE MEDS [Concomitant]

REACTIONS (1)
  - RENAL IMPAIRMENT [None]
